FAERS Safety Report 9688547 (Version 1)
Quarter: 2013Q4

REPORT INFORMATION
  Report Type: Spontaneous
  Country: US (occurrence: US)
  Receive Date: 20131114
  Receipt Date: 20131114
  Transmission Date: 20140711
  Serious: Yes (Hospitalization)
  Sender: FDA-Public Use
  Company Number: US-009507513-1311USA005421

PATIENT
  Sex: Female

DRUGS (1)
  1. JANUVIA [Suspect]
     Indication: DIABETES MELLITUS
     Dosage: 100 MG, QD
     Route: 048
     Dates: end: 20131111

REACTIONS (1)
  - Rash [Unknown]
